FAERS Safety Report 14069180 (Version 2)
Quarter: 2017Q4

REPORT INFORMATION
  Report Type: Spontaneous
  Country: CZ (occurrence: CZ)
  Receive Date: 20171010
  Receipt Date: 20171023
  Transmission Date: 20180321
  Serious: Yes (Hospitalization, Other)
  Sender: FDA-Public Use
  Company Number: CZ-TEVA-810906ROM

PATIENT
  Age: 66 Year
  Sex: Female

DRUGS (3)
  1. PARACETAMOL [Suspect]
     Active Substance: ACETAMINOPHEN
     Indication: PYREXIA
     Dosage: 1000 MILLIGRAM DAILY;
     Route: 048
     Dates: start: 201010, end: 2010
  2. OMEPRAZOLE. [Suspect]
     Active Substance: OMEPRAZOLE
     Indication: DYSPEPSIA
     Dosage: 40 MILLIGRAM DAILY;
     Route: 048
     Dates: start: 201008, end: 2010
  3. AMOXICILLIN. [Suspect]
     Active Substance: AMOXICILLIN
     Indication: LYME DISEASE
     Dosage: 1000 MILLIGRAM DAILY;
     Route: 048
     Dates: start: 201009, end: 2010

REACTIONS (9)
  - Hepatic cirrhosis [Not Recovered/Not Resolved]
  - Encephalopathy [Not Recovered/Not Resolved]
  - Drug-induced liver injury [Not Recovered/Not Resolved]
  - Hepatic necrosis [Not Recovered/Not Resolved]
  - Jaundice [Not Recovered/Not Resolved]
  - Liver injury [Not Recovered/Not Resolved]
  - Ascites [Not Recovered/Not Resolved]
  - Oesophageal varices haemorrhage [Recovered/Resolved]
  - Cholestasis [Not Recovered/Not Resolved]

NARRATIVE: CASE EVENT DATE: 2010
